FAERS Safety Report 8198691-5 (Version None)
Quarter: 2012Q1

REPORT INFORMATION
  Report Type: 
  Country: None (occurrence: None)
  Receive Date: 20120309
  Receipt Date: 20120301
  Transmission Date: 20120608
  Serious: Yes (Other)
  Sender: FDA-Public Use
  Company Number: FR-ELI_LILLY_AND_COMPANY-FR201203001265

PATIENT
  Age: 55 Year
  Sex: Male

DRUGS (7)
  1. EFFIENT [Suspect]
     Dosage: 10 MG, UNKNOWN
     Route: 048
     Dates: start: 20110601, end: 20111101
  2. BISOPROLOL FUMARATE [Concomitant]
     Dosage: UNK, UNKNOWN
     Dates: start: 20110601
  3. CRESTOR [Concomitant]
     Indication: MYOCARDIAL INFARCTION
     Dosage: UNK, UNKNOWN
     Dates: start: 20110601, end: 20110901
  4. ASPIRIN [Concomitant]
     Dosage: UNK, UNKNOWN
     Dates: start: 20110601
  5. OMACOR [Concomitant]
     Dosage: UNK, UNKNOWN
     Dates: start: 20110601
  6. METFORMIN HCL [Concomitant]
     Dosage: UNK, UNKNOWN
     Dates: start: 20110601
  7. RAMIPRIL [Concomitant]
     Dosage: UNK, UNKNOWN
     Dates: start: 20110601

REACTIONS (1)
  - GAMMA-GLUTAMYLTRANSFERASE INCREASED [None]
